FAERS Safety Report 6821981-2 (Version None)
Quarter: 2010Q3

REPORT INFORMATION
  Report Type: 
  Country: None (occurrence: None)
  Receive Date: 20100708
  Receipt Date: 20100311
  Transmission Date: 20110219
  Serious: Yes (Other)
  Sender: FDA-Public Use
  Company Number: US-ASTRAZENECA-2007UW18823

PATIENT
  Age: 476 Month
  Sex: Male
  Weight: 113.9 kg

DRUGS (10)
  1. SEROQUEL [Suspect]
     Indication: SCHIZOPHRENIA
     Route: 048
     Dates: start: 20010221, end: 20070730
  2. SEROQUEL [Suspect]
     Indication: SCHIZOAFFECTIVE DISORDER
     Route: 048
     Dates: start: 20010221, end: 20070730
  3. SEROQUEL [Suspect]
     Indication: BIPOLAR DISORDER
     Route: 048
     Dates: start: 20010221, end: 20070730
  4. SEROQUEL [Suspect]
     Indication: DEPRESSION
     Route: 048
     Dates: start: 20010221, end: 20070730
  5. SEROQUEL [Suspect]
     Dosage: 25 TO 600 MG
     Route: 048
     Dates: start: 20020221
  6. SEROQUEL [Suspect]
     Dosage: 25 TO 600 MG
     Route: 048
     Dates: start: 20020221
  7. SEROQUEL [Suspect]
     Dosage: 25 TO 600 MG
     Route: 048
     Dates: start: 20020221
  8. SEROQUEL [Suspect]
     Dosage: 25 TO 600 MG
     Route: 048
     Dates: start: 20020221
  9. RISPERDAL [Concomitant]
     Dates: start: 20010101
  10. DEPAKOTE [Concomitant]

REACTIONS (4)
  - BLOOD CHOLESTEROL INCREASED [None]
  - DIABETES MELLITUS [None]
  - DIABETIC NEUROPATHY [None]
  - WEIGHT INCREASED [None]
